FAERS Safety Report 4303912-2 (Version None)
Quarter: 2004Q1

REPORT INFORMATION
  Report Type: 
  Country: None (occurrence: None)
  Receive Date: 20040225
  Receipt Date: 20040216
  Transmission Date: 20041129
  Serious: Yes (Other)
  Sender: FDA-Public Use
  Company Number: WAES 0402CAN00069

PATIENT
  Age: 57 Year
  Sex: Female

DRUGS (1)
  1. SYPRINE [Suspect]
     Route: 048
     Dates: start: 20011113

REACTIONS (1)
  - MYASTHENIA GRAVIS [None]
